FAERS Safety Report 9184025 (Version 1)
Quarter: 2013Q1

REPORT INFORMATION
  Report Type: Report from Study
  Country: US (occurrence: US)
  Receive Date: 20130322
  Receipt Date: 20130322
  Transmission Date: 20140127
  Serious: Yes (Hospitalization, Other)
  Sender: FDA-Public Use
  Company Number: US-ROCHE-1176042

PATIENT
  Sex: Female
  Weight: 65.83 kg

DRUGS (7)
  1. PEGASYS [Suspect]
     Indication: HEPATITIS C
     Route: 058
     Dates: start: 20121222
  2. PEGASYS [Suspect]
     Route: 058
     Dates: end: 20130210
  3. RIBAVIRIN [Suspect]
     Indication: HEPATITIS C
     Dosage: INDIVIDED DOSES
     Route: 048
     Dates: start: 20121222
  4. RIBAVIRIN [Suspect]
     Route: 048
     Dates: start: 20121228
  5. RIBAVIRIN [Suspect]
     Dosage: 1600MG/DAY
     Route: 065
  6. RIBAVIRIN [Suspect]
     Route: 048
     Dates: end: 20130210
  7. TELAPREVIR [Suspect]
     Indication: HEPATITIS C
     Route: 065
     Dates: start: 20130125, end: 20130210

REACTIONS (26)
  - Renal failure [Unknown]
  - Chromaturia [Unknown]
  - Vomiting [Unknown]
  - Diarrhoea [Unknown]
  - Weight decreased [Unknown]
  - Blood iron decreased [Unknown]
  - Rash generalised [Unknown]
  - Nausea [Unknown]
  - Decreased appetite [Unknown]
  - Muscle spasms [Unknown]
  - Muscle spasms [Unknown]
  - Fatigue [Unknown]
  - Vision blurred [Unknown]
  - Overdose [Unknown]
  - Dysgeusia [Unknown]
  - Decreased appetite [Unknown]
  - Nausea [Unknown]
  - Alopecia [Unknown]
  - Rectal haemorrhage [Unknown]
  - Lid sulcus deepened [Unknown]
  - Vomiting [Unknown]
  - Dehydration [Unknown]
  - Malnutrition [Unknown]
  - Asthenia [Unknown]
  - Dyspnoea exertional [Unknown]
  - Urinary retention [Unknown]
